FAERS Safety Report 8932285 (Version 1)
Quarter: 2012Q4

REPORT INFORMATION
  Report Type: 
  Country: CN (occurrence: CN)
  Receive Date: 20121128
  Receipt Date: 20121128
  Transmission Date: 20130627
  Serious: Yes (Death)
  Sender: FDA-Public Use
  Company Number: CN-PFIZER INC-2012295772

PATIENT
  Age: 67 Year
  Sex: Male

DRUGS (1)
  1. SUTENT [Suspect]
     Indication: GASTROINTESTINAL STROMAL TUMOUR
     Dosage: 50 mg, 1x/day
     Route: 048
     Dates: start: 200910

REACTIONS (3)
  - Disease progression [Fatal]
  - Gastrointestinal stromal tumour [Fatal]
  - Multi-organ failure [Fatal]
